FAERS Safety Report 19232521 (Version 1)
Quarter: 2021Q2

REPORT INFORMATION
  Report Type: Spontaneous
  Country: BE (occurrence: BE)
  Receive Date: 20210507
  Receipt Date: 20210507
  Transmission Date: 20210717
  Serious: Yes (Life-Threatening, Hospitalization)
  Sender: FDA-Public Use
  Company Number: BE-TEVA-2021-BE-1909971

PATIENT
  Age: 49 Year
  Sex: Male

DRUGS (8)
  1. CYCLOPHOSPHAMIDE. [Suspect]
     Active Substance: CYCLOPHOSPHAMIDE
     Indication: HODGKIN^S DISEASE
     Dosage: FOUR CYCLES OF ESCALATED BEACOPP REGIMEN
     Route: 065
     Dates: start: 200602, end: 200604
  2. PREDNISONE. [Suspect]
     Active Substance: PREDNISONE
     Indication: HODGKIN^S DISEASE
     Dosage: FOUR CYCLES OF ESCALATED BEACOPP REGIMEN
     Route: 065
     Dates: start: 200602, end: 200604
  3. LAMIVUDINE. [Suspect]
     Active Substance: LAMIVUDINE
     Indication: HEPATITIS B REACTIVATION
     Route: 065
  4. ONCOVIN [Suspect]
     Active Substance: VINCRISTINE SULFATE
     Indication: HODGKIN^S DISEASE
     Dosage: FOUR CYCLES OF ESCALATED BEACOPP REGIMEN
     Route: 065
     Dates: start: 200602, end: 200604
  5. ADRIAMYCIN [Suspect]
     Active Substance: DOXORUBICIN HYDROCHLORIDE
     Indication: HODGKIN^S DISEASE
     Dosage: FOUR CYCLES OF ESCALATED BEACOPP REGIMEN
     Route: 065
     Dates: start: 200602, end: 200604
  6. ETOPOSIDE. [Suspect]
     Active Substance: ETOPOSIDE
     Indication: HODGKIN^S DISEASE
     Dosage: FOUR CYCLES OF ESCALATED BEACOPP REGIMEN
     Route: 065
     Dates: start: 200602, end: 200604
  7. BLEOMYCIN [Suspect]
     Active Substance: BLEOMYCIN SULFATE
     Indication: HODGKIN^S DISEASE
     Dosage: FOUR CYCLES OF ESCALATED BEACOPP REGIMEN
     Route: 065
     Dates: start: 200602, end: 200604
  8. PROCARBAZINE [Suspect]
     Active Substance: PROCARBAZINE
     Indication: HODGKIN^S DISEASE
     Dosage: FOUR CYCLES OF ESCALATED BEACOPP REGIMEN
     Route: 065
     Dates: start: 200602, end: 200604

REACTIONS (4)
  - Drug ineffective [Unknown]
  - Hepatic failure [Recovered/Resolved]
  - Hepatitis B reactivation [Recovered/Resolved]
  - Hepatic encephalopathy [Recovered/Resolved]

NARRATIVE: CASE EVENT DATE: 200606
